FAERS Safety Report 5060771-0 (Version None)
Quarter: 2006Q2

REPORT INFORMATION
  Report Type: 
  Country: None (occurrence: None)
  Receive Date: 20060630
  Receipt Date: 20060303
  Transmission Date: 20061013
  Serious: Yes (Hospitalization)
  Sender: FDA-Public Use
  Company Number: US200603001304

PATIENT
  Age: 40 Year
  Sex: Female
  Weight: 83.9 kg

DRUGS (3)
  1. HUMALOG [Suspect]
     Indication: DIABETES MELLITUS INSULIN-DEPENDENT
  2. HUMALOG [Suspect]
  3. HUMALOG [Suspect]

REACTIONS (1)
  - DIABETIC KETOACIDOSIS [None]
